FAERS Safety Report 9100193 (Version 2)
Quarter: 2013Q2

REPORT INFORMATION
  Report Type: Spontaneous
  Country: IT (occurrence: IT)
  Receive Date: 20130215
  Receipt Date: 20130403
  Transmission Date: 20140414
  Serious: Yes (Hospitalization, Other)
  Sender: FDA-Public Use
  Company Number: IT-PFIZER INC-2013058726

PATIENT
  Age: 83 Year
  Sex: Female

DRUGS (5)
  1. XANAX [Suspect]
     Dosage: 30 GTT, 1X/DAY
     Route: 048
     Dates: start: 20120101
  2. LITHIUM CARBONATE [Suspect]
     Dosage: 2 DF, 1X/DAY
     Route: 048
     Dates: start: 20120101
  3. LIBRIUM [Suspect]
     Dosage: 1 DF, 1X/DAY
     Route: 048
     Dates: start: 20120719
  4. OLANZAPINE [Concomitant]
     Dosage: 2 DF, UNK
     Route: 048
     Dates: start: 20120101
  5. SERTRALINE HYDROCHLORIDE [Concomitant]
     Dosage: 2 DF, UNK
     Dates: start: 20120101

REACTIONS (5)
  - Bradycardia [Recovered/Resolved]
  - Antipsychotic drug level above therapeutic [Recovered/Resolved]
  - Blood creatinine increased [Recovered/Resolved]
  - Blood urea increased [Recovered/Resolved]
  - Nodal rhythm [Recovered/Resolved]
